FAERS Safety Report 9401851 (Version 2)
Quarter: 2014Q1

REPORT INFORMATION
  Report Type: Report from Study
  Country: CA (occurrence: CA)
  Receive Date: 20130716
  Receipt Date: 20140224
  Transmission Date: 20141002
  Serious: Yes (Hospitalization, Other)
  Sender: FDA-Public Use
  Company Number: CA-JNJFOC-20130706174

PATIENT
  Age: 68 Year
  Sex: Female
  Weight: 69.85 kg

DRUGS (13)
  1. STELARA [Suspect]
     Indication: RHEUMATOID ARTHRITIS
     Dosage: FREQUENCY- 0.3 MONTH
     Route: 058
     Dates: start: 20130607, end: 20130705
  2. STELARA [Suspect]
     Indication: PSORIASIS
     Dosage: FREQUENCY- 0.3 MONTH
     Route: 058
     Dates: start: 20130607, end: 20130705
  3. IRON [Suspect]
     Indication: PRODUCT USED FOR UNKNOWN INDICATION
     Route: 042
  4. IRON [Suspect]
     Indication: PRODUCT USED FOR UNKNOWN INDICATION
     Route: 042
  5. SORIATANE [Concomitant]
     Route: 065
  6. PREDNISONE [Concomitant]
     Route: 065
  7. KEFLEX [Concomitant]
     Route: 065
  8. AVAPRO [Concomitant]
     Route: 065
  9. ELAVIL [Concomitant]
     Route: 065
  10. RABEPRAZOLE SODIUM [Concomitant]
     Route: 065
  11. MORPHINE [Concomitant]
     Route: 065
  12. MORPHINE [Concomitant]
     Route: 065
  13. BENADRYL [Concomitant]
     Route: 065

REACTIONS (5)
  - Oedema peripheral [Recovering/Resolving]
  - Staphylococcal infection [Recovering/Resolving]
  - Pain [Unknown]
  - Paraesthesia [Recovered/Resolved]
  - Swelling face [Recovered/Resolved]
